FAERS Safety Report 25194816 (Version 1)
Quarter: 2025Q2

REPORT INFORMATION
  Report Type: Spontaneous
  Country: FR (occurrence: FR)
  Receive Date: 20250414
  Receipt Date: 20250414
  Transmission Date: 20250717
  Serious: Yes (Other)
  Sender: ABBVIE
  Company Number: FR-ABBVIE-6219193

PATIENT
  Age: 33 Year
  Sex: Male

DRUGS (5)
  1. FOSCARBIDOPA\FOSLEVODOPA [Suspect]
     Active Substance: FOSCARBIDOPA\FOSLEVODOPA
     Indication: Product used for unknown indication
     Route: 058
     Dates: start: 202412
  2. APOMORPHINE [Suspect]
     Active Substance: APOMORPHINE
     Indication: Product used for unknown indication
     Route: 065
  3. CARBIDOPA\LEVODOPA [Suspect]
     Active Substance: CARBIDOPA\LEVODOPA
     Indication: Product used for unknown indication
     Route: 065
  4. SERTRALINE [Concomitant]
     Active Substance: SERTRALINE HYDROCHLORIDE
     Indication: Product used for unknown indication
  5. CARBIDOPA AND LEVODOPA [Concomitant]
     Active Substance: CARBIDOPA\LEVODOPA
     Indication: Product used for unknown indication

REACTIONS (9)
  - Drug dependence [Unknown]
  - Hallucination [Unknown]
  - Dopamine dysregulation syndrome [Unknown]
  - Akinesia [Unknown]
  - Dyskinesia [Unknown]
  - Mental disorder [Recovering/Resolving]
  - Nodule [Unknown]
  - Impulsive behaviour [Unknown]
  - On and off phenomenon [Recovering/Resolving]
